FAERS Safety Report 24770625 (Version 1)
Quarter: 2024Q4

REPORT INFORMATION
  Report Type: Spontaneous
  Country: PT (occurrence: PT)
  Receive Date: 20241224
  Receipt Date: 20241224
  Transmission Date: 20250114
  Serious: Yes (Hospitalization)
  Sender: SANDOZ
  Company Number: None

PATIENT
  Age: 33 Year
  Sex: Female

DRUGS (21)
  1. BEVACIZUMAB [Suspect]
     Active Substance: BEVACIZUMAB
     Indication: Neuroendocrine carcinoma of the cervix
     Dosage: 15 MG/KG EVERY 21 DAYS; PATIENT COMPLETED A TOTAL OF THREE CYCLES, SECOND-LINE THERAPY
     Route: 065
  2. BEVACIZUMAB [Suspect]
     Active Substance: BEVACIZUMAB
     Indication: Disease progression
  3. BEVACIZUMAB [Suspect]
     Active Substance: BEVACIZUMAB
     Indication: Metastases to bone
  4. BEVACIZUMAB [Suspect]
     Active Substance: BEVACIZUMAB
     Indication: Metastases to breast
  5. BEVACIZUMAB [Suspect]
     Active Substance: BEVACIZUMAB
     Indication: Metastases to ovary
  6. BEVACIZUMAB [Suspect]
     Active Substance: BEVACIZUMAB
     Indication: Metastases to pancreas
  7. BEVACIZUMAB [Suspect]
     Active Substance: BEVACIZUMAB
     Indication: Papilloma viral infection
  8. PACLITAXEL [Suspect]
     Active Substance: PACLITAXEL
     Indication: Neuroendocrine carcinoma of the cervix
     Dosage: 175 MG/M2 EVERY 21 DAYS; PATIENT COMPLETED A TOTAL OF THREE CYCLES, SECOND-LINE THERAPY
     Route: 065
  9. PACLITAXEL [Suspect]
     Active Substance: PACLITAXEL
     Indication: Disease progression
  10. PACLITAXEL [Suspect]
     Active Substance: PACLITAXEL
     Indication: Metastases to bone
  11. PACLITAXEL [Suspect]
     Active Substance: PACLITAXEL
     Indication: Metastases to breast
  12. PACLITAXEL [Suspect]
     Active Substance: PACLITAXEL
     Indication: Metastases to ovary
  13. PACLITAXEL [Suspect]
     Active Substance: PACLITAXEL
     Indication: Metastases to pancreas
  14. PACLITAXEL [Suspect]
     Active Substance: PACLITAXEL
     Indication: Papilloma viral infection
  15. TOPOTECAN [Suspect]
     Active Substance: TOPOTECAN HYDROCHLORIDE
     Indication: Neuroendocrine carcinoma of the cervix
     Dosage: 0.75 MG/M2, EVERY 21 DAYS; PATIENT COMPLETED A TOTAL OF THREE CYCLES, SECOND-LINE THERAPY
     Route: 065
  16. TOPOTECAN [Suspect]
     Active Substance: TOPOTECAN HYDROCHLORIDE
     Indication: Disease progression
  17. TOPOTECAN [Suspect]
     Active Substance: TOPOTECAN HYDROCHLORIDE
     Indication: Metastases to bone
  18. TOPOTECAN [Suspect]
     Active Substance: TOPOTECAN HYDROCHLORIDE
     Indication: Metastases to breast
  19. TOPOTECAN [Suspect]
     Active Substance: TOPOTECAN HYDROCHLORIDE
     Indication: Metastases to ovary
  20. TOPOTECAN [Suspect]
     Active Substance: TOPOTECAN HYDROCHLORIDE
     Indication: Metastases to pancreas
  21. TOPOTECAN [Suspect]
     Active Substance: TOPOTECAN HYDROCHLORIDE
     Indication: Papilloma viral infection

REACTIONS (1)
  - Skin toxicity [Unknown]
